FAERS Safety Report 24878680 (Version 1)
Quarter: 2025Q1

REPORT INFORMATION
  Report Type: Spontaneous
  Country: GB (occurrence: GB)
  Receive Date: 20250123
  Receipt Date: 20250123
  Transmission Date: 20250409
  Serious: Yes (Other)
  Sender: DR REDDYS
  Company Number: None

PATIENT
  Age: 79 Year
  Sex: Male
  Weight: 100 kg

DRUGS (25)
  1. PREGABALIN [Suspect]
     Active Substance: PREGABALIN
     Indication: Ill-defined disorder
     Dosage: 1 TO BE TAKEN TWOTIMES DAILY/50 CAPSULES
     Dates: start: 20240709
  2. MORPHINE SULFATE [Concomitant]
     Active Substance: MORPHINE SULFATE
     Indication: Ill-defined disorder
     Dates: start: 20250106
  3. MORPHINE SULFATE [Concomitant]
     Active Substance: MORPHINE SULFATE
     Indication: Pain
  4. FUROSEMIDE [Concomitant]
     Active Substance: FUROSEMIDE
     Indication: Ill-defined disorder
     Dosage: TAKE TWO EACH MORNING AND ONE AT TEA TIME/TPP YC - PLEASE RECLASSIFY
     Dates: start: 20240613
  5. CEPHALEXIN [Concomitant]
     Active Substance: CEPHALEXIN
     Indication: Ill-defined disorder
     Dosage: 1 TO BE TAKEN AT NIGHT/TPP YC - PLEASE RECLASSIFY
     Dates: start: 20240319
  6. DONEPEZIL HYDROCHLORIDE [Concomitant]
     Active Substance: DONEPEZIL HYDROCHLORIDE
     Indication: Ill-defined disorder
     Dosage: TAKE ONE DAILY/TPP YC - PLEASE RECLASSIFY
     Dates: start: 20240319
  7. EDOXABAN [Concomitant]
     Active Substance: EDOXABAN
     Indication: Ill-defined disorder
     Dosage: 1 EVERY DAY/TPP YC - PLEASE RECLASSIFY
     Dates: start: 20240319
  8. LACTULOSE [Concomitant]
     Active Substance: LACTULOSE
     Indication: Ill-defined disorder
     Dosage: 15MLS TWICE DAILY/TPP YC - PLEASE RECLASSIFY
     Dates: start: 20240319
  9. POLYETHYLENE GLYCOL 3350\POTASSIUM CHLORIDE\SODIUM BICARBONATE\SODIUM [Concomitant]
     Active Substance: POLYETHYLENE GLYCOL 3350\POTASSIUM CHLORIDE\SODIUM BICARBONATE\SODIUM CHLORIDE
     Indication: Ill-defined disorder
     Dates: start: 20240319
  10. MIRTAZAPINE [Concomitant]
     Active Substance: MIRTAZAPINE
     Indication: Ill-defined disorder
     Dosage: 1 TO BE TAKEN AT NIGHT/TPP YC - PLEASE RECLASSIFY
     Dates: start: 20240319
  11. MOMETASONE [Concomitant]
     Active Substance: MOMETASONE
     Indication: Ill-defined disorder
     Dosage: TWO SPRAYS TWICE A DAY/TPP YC - PLEASE RECLASSIFY
     Dates: start: 20240319
  12. OMEPRAZOLE [Concomitant]
     Active Substance: OMEPRAZOLE
     Indication: Ill-defined disorder
     Dosage: TAKE ONE ONCE DAILY/TPP YC - PLEASE RECLASSIFY
     Dates: start: 20240319
  13. RIFAXIMIN [Concomitant]
     Active Substance: RIFAXIMIN
     Indication: Ill-defined disorder
     Dosage: TAKE ONE TWICE DAILY/TPP YC - PLEASE RECLASSIFY
     Dates: start: 20240319
  14. SPIRONOLACTONE [Concomitant]
     Active Substance: SPIRONOLACTONE
     Indication: Ill-defined disorder
     Dates: start: 20240319
  15. TAMSULOSIN HYDROCHLORIDE [Concomitant]
     Active Substance: TAMSULOSIN HYDROCHLORIDE
     Indication: Ill-defined disorder
     Dosage: 1 TO BE TAKEN AT NIGHT/TPP YC - PLEASE RECLASSIFY
     Dates: start: 20240319
  16. PROPRANOLOL [Concomitant]
     Active Substance: PROPRANOLOL HYDROCHLORIDE
     Indication: Ill-defined disorder
     Dosage: TAKE ONE DAILY/TPP YC - PLEASE RECLASSIFY
     Dates: start: 20240326
  17. LEVOMEPROMAZINE [Concomitant]
     Active Substance: LEVOMEPROMAZINE
     Indication: Ill-defined disorder
     Dates: start: 20240429
  18. MIDAZOLAM [Concomitant]
     Active Substance: MIDAZOLAM
     Indication: Ill-defined disorder
     Dates: start: 20240429
  19. MIDAZOLAM [Concomitant]
     Active Substance: MIDAZOLAM
     Indication: Haemorrhage
  20. BUPRENORPHINE [Concomitant]
     Active Substance: BUPRENORPHINE
     Indication: Ill-defined disorder
     Dosage: APPLY ONE WEEKLY/TPP YC - PLEASE RECLASSIFY
     Dates: start: 20240429
  21. 3M CAVILON ANTIFUNGAL [Concomitant]
     Active Substance: MICONAZOLE NITRATE
     Indication: Ill-defined disorder
     Dates: start: 20240502
  22. ACETAMINOPHEN [Concomitant]
     Active Substance: ACETAMINOPHEN
     Indication: Ill-defined disorder
     Dates: start: 20240502
  23. LOPERAMIDE [Concomitant]
     Active Substance: LOPERAMIDE
     Indication: Ill-defined disorder
     Dates: start: 20240801
  24. LOPERAMIDE [Concomitant]
     Active Substance: LOPERAMIDE
     Indication: Diarrhoea
  25. CARVEDILOL [Concomitant]
     Active Substance: CARVEDILOL
     Indication: Ill-defined disorder
     Dosage: TAKE ONE DAILY/TPP YC - PLEASE RECLASSIFY
     Dates: start: 20240823

REACTIONS (1)
  - Monoplegia [Recovered/Resolved]
